FAERS Safety Report 8468482-6 (Version None)
Quarter: 2012Q2

REPORT INFORMATION
  Report Type: 
  Country: None (occurrence: None)
  Receive Date: 20120626
  Receipt Date: 20120613
  Transmission Date: 20120825
  Serious: Yes (Other)
  Sender: FDA-Public Use
  Company Number: CA-ROCHE-1078897

PATIENT
  Sex: Female

DRUGS (18)
  1. ACTEMRA [Suspect]
     Route: 042
     Dates: start: 20120516
  2. LYRICA [Concomitant]
     Route: 065
  3. ACTEMRA [Suspect]
     Route: 042
     Dates: start: 20111116
  4. EUCORIN ANTI-ITCH SPRAY (UNK INGREDIENTS) [Concomitant]
     Route: 065
  5. METHOTRIMEPRAZINE [Concomitant]
     Route: 065
  6. RANITIDINE [Concomitant]
     Route: 065
  7. TRAZALON [Concomitant]
     Route: 065
  8. CALCIUM [Concomitant]
     Route: 065
  9. NAPROXEN [Concomitant]
     Route: 065
  10. PREDNISONE [Concomitant]
     Route: 065
  11. PANTOPRAZOLE [Concomitant]
     Route: 065
  12. ASPIRIN [Concomitant]
     Route: 065
  13. ACTEMRA [Suspect]
     Indication: RHEUMATOID ARTHRITIS
     Route: 042
     Dates: start: 20101123
  14. CYCLOBENZAPRINE [Concomitant]
     Route: 065
  15. TIAZAC [Concomitant]
     Route: 065
  16. IMDUR [Concomitant]
     Route: 065
  17. CRESTOR [Concomitant]
     Route: 065
  18. LORAZEPAM [Concomitant]
     Route: 065

REACTIONS (1)
  - WOUND [None]
